FAERS Safety Report 20836394 (Version 1)
Quarter: 2022Q2

REPORT INFORMATION
  Report Type: Spontaneous
  Country: FR (occurrence: FR)
  Receive Date: 20220517
  Receipt Date: 20220517
  Transmission Date: 20220721
  Serious: Yes (Other)
  Sender: FDA-Public Use
  Company Number: FR-AFSSAPS-CN20220712

PATIENT
  Age: 66 Year
  Sex: Male

DRUGS (7)
  1. ATORVASTATIN [Suspect]
     Active Substance: ATORVASTATIN
     Indication: Ischaemic heart disease prophylaxis
     Dosage: 80 MILLIGRAM, ONCE A DAY (ATORVASTATINE 80 MG/JOUR)
     Route: 048
  2. BISOPROLOL [Suspect]
     Active Substance: BISOPROLOL
     Indication: Ischaemic heart disease prophylaxis
     Dosage: 5 MILLIGRAM, ONCE A DAY (BISOPROLOL 5 MG/JOUR)
     Route: 048
  3. EZETIMIBE [Suspect]
     Active Substance: EZETIMIBE
     Indication: Ischaemic heart disease prophylaxis
     Dosage: 10 MILLIGRAM, ONCE A DAY (?Z?TIMIBE 10 MG/JOUR)
     Route: 048
  4. PERINDOPRIL [Suspect]
     Active Substance: PERINDOPRIL
     Indication: Ischaemic heart disease prophylaxis
     Dosage: 2 MILLIGRAM, ONCE A DAY (P?RINDOPRIL 2 MG/JOUR)
     Route: 048
  5. PANTOPRAZOLE [Suspect]
     Active Substance: PANTOPRAZOLE
     Indication: Ischaemic heart disease prophylaxis
     Dosage: 20 MILLIGRAM, ONCE A DAY (PANTOPRAZOLE 20 MG/JOUR)
     Route: 048
  6. KARDEGIC [Suspect]
     Active Substance: ASPIRIN DL-LYSINE
     Indication: Ischaemic heart disease prophylaxis
     Dosage: 75 MILLIGRAM, ONCE A DAY (KARDEGIC? (ACIDE AC?TYLSALICYLIQUE) 75 MG/JOUR)
     Route: 048
  7. AVANAFIL [Suspect]
     Active Substance: AVANAFIL
     Indication: Erectile dysfunction
     Dosage: 200 MILLIGRAM, AS NECESSARY (SPEDRA? (AVANAFIL) 200 MG CPR 1 SI BESOIN)
     Route: 048

REACTIONS (1)
  - Bladder cancer [Not Recovered/Not Resolved]

NARRATIVE: CASE EVENT DATE: 20220311
